FAERS Safety Report 6834469-X (Version None)
Quarter: 2010Q3

REPORT INFORMATION
  Report Type: 
  Country: None (occurrence: None)
  Receive Date: 20100712
  Receipt Date: 20070607
  Transmission Date: 20110219
  Serious: No
  Sender: FDA-Public Use
  Company Number: US-PFIZER INC-2007027479

PATIENT
  Sex: Female
  Weight: 76.2 kg

DRUGS (13)
  1. CHANTIX [Suspect]
     Indication: SMOKING CESSATION THERAPY
     Route: 048
     Dates: start: 20070221, end: 20070404
  2. TOPROL-XL [Concomitant]
  3. ISOSORBIDE MONONITRATE [Concomitant]
  4. NORVASC [Concomitant]
  5. AVANDIA [Concomitant]
  6. PROTONIX [Concomitant]
  7. ASENDIN [Concomitant]
  8. ZOCOR [Concomitant]
  9. HYDROCHLOROTHIAZIDE [Concomitant]
  10. ENALAPRIL MALEATE [Concomitant]
  11. MULTI-VITAMINS [Concomitant]
  12. CHONDROITIN/GLUCOSAMINE [Concomitant]
  13. TYLENOL (CAPLET) [Concomitant]

REACTIONS (3)
  - APPETITE DISORDER [None]
  - FLATULENCE [None]
  - NAUSEA [None]
